FAERS Safety Report 8025058-2 (Version None)
Quarter: 2012Q1

REPORT INFORMATION
  Report Type: 
  Country: None (occurrence: None)
  Receive Date: 20120105
  Receipt Date: 20111227
  Transmission Date: 20120608
  Serious: Yes (Hospitalization, Disabling, Other)
  Sender: FDA-Public Use
  Company Number: US-MERCK-1004USA01262

PATIENT
  Age: 58 Year
  Sex: Female
  Weight: 70 kg

DRUGS (12)
  1. METOPROLOL SUCCINATE [Concomitant]
     Indication: ESSENTIAL HYPERTENSION
     Route: 065
  2. FOSAMAX [Suspect]
     Indication: OSTEOPENIA
     Route: 048
     Dates: start: 20020101, end: 20080501
  3. HYDROCHLOROTHIAZIDE [Concomitant]
     Indication: ESSENTIAL HYPERTENSION
     Route: 048
  4. LIPITOR [Concomitant]
     Indication: HYPERLIPIDAEMIA
     Route: 065
  5. ASPIRIN [Concomitant]
     Route: 065
  6. FOSAMAX [Suspect]
     Indication: OSTEOPOROSIS
     Route: 048
     Dates: start: 20020101, end: 20080501
  7. FOSAMAX [Suspect]
     Route: 048
     Dates: start: 20091201, end: 20100301
  8. VITAMINS (UNSPECIFIED) [Concomitant]
     Route: 065
     Dates: start: 20050101
  9. FOSAMAX [Suspect]
     Route: 048
     Dates: start: 20080501, end: 20091201
  10. FOSAMAX [Suspect]
     Route: 048
     Dates: start: 20091201, end: 20100301
  11. CALCIUM (UNSPECIFIED) AND VITAMIN D (UNSPECIFIED) [Concomitant]
     Route: 065
     Dates: start: 20050101
  12. FOSAMAX [Suspect]
     Route: 048
     Dates: start: 20080501, end: 20091201

REACTIONS (7)
  - RIB FRACTURE [None]
  - ATROPHIC VULVOVAGINITIS [None]
  - FEMUR FRACTURE [None]
  - RADIUS FRACTURE [None]
  - ARTHRALGIA [None]
  - LOW TURNOVER OSTEOPATHY [None]
  - FALL [None]
